FAERS Safety Report 18050296 (Version 5)
Quarter: 2020Q4

REPORT INFORMATION
  Report Type: Other
  Country: US (occurrence: US)
  Receive Date: 20200721
  Receipt Date: 20201109
  Transmission Date: 20210113
  Serious: Yes (Other)
  Sender: FDA-Public Use
  Company Number: US-ROCHE-2462302

PATIENT
  Age: 57 Year
  Sex: Male
  Weight: 72.64 kg

DRUGS (8)
  1. OXYCODONE [Concomitant]
     Active Substance: OXYCODONE
     Indication: PAIN
  2. DARVOCET [Concomitant]
     Active Substance: ACETAMINOPHEN\PROPOXYPHENE HYDROCHLORIDE
     Indication: PAIN
  3. TYLENOL [Concomitant]
     Active Substance: ACETAMINOPHEN
  4. OCREVUS [Suspect]
     Active Substance: OCRELIZUMAB
     Indication: RELAPSING-REMITTING MULTIPLE SCLEROSIS
     Dosage: INFUSION DATE: 15-MAY-2018, 05-JUN-2018
     Route: 042
     Dates: start: 20180515
  5. OCREVUS [Suspect]
     Active Substance: OCRELIZUMAB
     Route: 041
     Dates: start: 20180515
  6. OCREVUS [Suspect]
     Active Substance: OCRELIZUMAB
     Route: 042
     Dates: start: 2018, end: 2019
  7. OCREVUS [Suspect]
     Active Substance: OCRELIZUMAB
     Indication: RELAPSING MULTIPLE SCLEROSIS
     Route: 042
     Dates: start: 20180605
  8. OCREVUS [Suspect]
     Active Substance: OCRELIZUMAB
     Dosage: DATE OF INFUSION: 09-DEC-2019, 26-JUN-2020
     Route: 042
     Dates: start: 20180515, end: 20191209

REACTIONS (11)
  - Product quality issue [Unknown]
  - Influenza [Unknown]
  - Nasal congestion [Unknown]
  - Multiple sclerosis [Not Recovered/Not Resolved]
  - Therapeutic product effect decreased [Recovered/Resolved]
  - Influenza [Unknown]
  - Weight increased [Recovered/Resolved]
  - Intentional product use issue [Unknown]
  - Gait disturbance [Recovered/Resolved]
  - Body height decreased [Unknown]
  - Off label use [Unknown]

NARRATIVE: CASE EVENT DATE: 202005
